FAERS Safety Report 23409012 (Version 2)
Quarter: 2024Q2

REPORT INFORMATION
  Report Type: Spontaneous
  Country: US (occurrence: US)
  Receive Date: 20240117
  Receipt Date: 20240401
  Transmission Date: 20240715
  Serious: Yes (Other)
  Sender: FDA-Public Use
  Company Number: US-BAYER-2024A007291

PATIENT
  Sex: Male

DRUGS (1)
  1. AFRIN ORIGINAL NASAL [Suspect]
     Active Substance: OXYMETAZOLINE HYDROCHLORIDE
     Indication: Regional chemotherapy
     Dosage: 1X EVERY 4-6 WEEKS

REACTIONS (2)
  - Urinary retention [Recovered/Resolved]
  - Off label use [None]
